FAERS Safety Report 21421352 (Version 1)
Quarter: 2022Q4

REPORT INFORMATION
  Report Type: Other
  Country: GB (occurrence: GB)
  Receive Date: 20221007
  Receipt Date: 20221007
  Transmission Date: 20230112
  Serious: Yes (Other)
  Sender: FDA-Public Use
  Company Number: GB-BAXTER-2022BAX019854

PATIENT

DRUGS (3)
  1. DEXAMETHASONE [Suspect]
     Active Substance: DEXAMETHASONE
     Indication: Premedication
     Dosage: 8 MG
     Route: 042
     Dates: start: 20220715, end: 20220715
  2. PACLITAXEL [Suspect]
     Active Substance: PACLITAXEL
     Indication: Breast cancer
     Dosage: 144 MILLIGRAM (MG) AT AN INFUSION RATE OF 300 ML/HR
     Route: 042
     Dates: start: 20220715, end: 20220715
  3. CHLORPHENIRAMINE MALEATE [Suspect]
     Active Substance: CHLORPHENIRAMINE MALEATE
     Indication: Premedication
     Dosage: 10 MG
     Route: 042
     Dates: start: 20220715, end: 20220715

REACTIONS (7)
  - Oropharyngeal discomfort [Unknown]
  - Erythema [Unknown]
  - Flushing [Unknown]
  - Nausea [Unknown]
  - Back pain [Unknown]
  - Abdominal pain upper [Recovered/Resolved]
  - Dizziness [Unknown]

NARRATIVE: CASE EVENT DATE: 20220715
